FAERS Safety Report 8340849-6 (Version None)
Quarter: 2012Q1

REPORT INFORMATION
  Report Type: 
  Country: None (occurrence: None)
  Receive Date: 20120329
  Receipt Date: 20090323
  Transmission Date: 20120608
  Serious: Yes (Other)
  Sender: FDA-Public Use
  Company Number: PHEH2009US01727

PATIENT
  Age: 68 Year
  Sex: Female

DRUGS (4)
  1. EXELON [Suspect]
     Indication: DEMENTIA ALZHEIMER'S TYPE
     Dosage: 4.6 MG, QHS, TRANSDERMAL ; 4.6 MG, QD (AM), TRANSDEMAL
     Route: 062
     Dates: start: 20090101
  2. ANTIHYPERTENSIVE DRUGS (NO INGREDIENTS/SUBSTANCES) [Concomitant]
  3. LIPID MODIFYING AGENTS (NO INGREDIENTS/SUBSTANCES) [Concomitant]
  4. PROZAC [Concomitant]

REACTIONS (5)
  - HALLUCINATION [None]
  - VOMITING [None]
  - NAUSEA [None]
  - INSOMNIA [None]
  - DRUG INTERACTION [None]
